FAERS Safety Report 21352194 (Version 1)
Quarter: 2022Q3

REPORT INFORMATION
  Report Type: Spontaneous
  Country: FR (occurrence: FR)
  Receive Date: 20220920
  Receipt Date: 20220920
  Transmission Date: 20221026
  Serious: Yes (Life-Threatening, Congenital Anomaly, Other)
  Sender: FDA-Public Use
  Company Number: FR-BRISTOL-MYERS SQUIBB COMPANY-2022-083991

PATIENT
  Age: 1 Day
  Sex: Male

DRUGS (1)
  1. NIVOLUMAB [Suspect]
     Active Substance: NIVOLUMAB
     Indication: Product used for unknown indication
     Dosage: THERAPY INITIATED ON 23 OF DECEMBER (YEAR NOT SPECIFIED)
     Route: 064

REACTIONS (4)
  - Neonatal respiratory distress [Unknown]
  - Premature baby [Unknown]
  - Hypospadias [Unknown]
  - Foetal exposure during pregnancy [Unknown]
